FAERS Safety Report 18940233 (Version 1)
Quarter: 2021Q1

REPORT INFORMATION
  Report Type: Spontaneous
  Country: US (occurrence: US)
  Receive Date: 20210225
  Receipt Date: 20210225
  Transmission Date: 20210420
  Serious: No
  Sender: FDA-Public Use
  Company Number: US-ELI_LILLY_AND_COMPANY-US202101012415

PATIENT
  Age: 68 Year
  Sex: Male

DRUGS (1)
  1. RETEVMO [Suspect]
     Active Substance: SELPERCATINIB
     Indication: NON-SMALL CELL LUNG CANCER
     Dosage: UNK MG
     Route: 065
     Dates: start: 20201229

REACTIONS (2)
  - Fungal infection [Recovering/Resolving]
  - Hypertension [Recovering/Resolving]
